FAERS Safety Report 10063568 (Version 2)
Quarter: 2014Q2

REPORT INFORMATION
  Report Type: Spontaneous
  Country: CA (occurrence: CA)
  Receive Date: 20140407
  Receipt Date: 20140417
  Transmission Date: 20141212
  Serious: Yes (Hospitalization)
  Sender: FDA-Public Use
  Company Number: CA-009507513-1404CAN000502

PATIENT
  Age: 62 Year
  Sex: Male

DRUGS (3)
  1. VICTRELIS [Suspect]
     Indication: CHRONIC HEPATITIS C
     Dosage: 800 MG, 3 / 1DAYS
     Route: 048
  2. PEGASYS RBV [Suspect]
     Indication: CHRONIC HEPATITIS C
     Dosage: 180 MICROGRAM, 1 / 1 WEEKS
     Route: 058
     Dates: start: 20140212, end: 20140319
  3. COPEGUS [Suspect]
     Indication: CHRONIC HEPATITIS C
     Dosage: 1400 MG 1/1 DAYS 49 TABLETS/WEEK
     Route: 048
     Dates: start: 20140212

REACTIONS (1)
  - Haemorrhage [Not Recovered/Not Resolved]
